FAERS Safety Report 8791296 (Version 1)
Quarter: 2012Q4

REPORT INFORMATION
  Report Type: Spontaneous
  Country: IL (occurrence: None)
  Receive Date: 20120911
  Receipt Date: 20120911
  Transmission Date: 20130627
  Serious: Yes (Hospitalization)
  Sender: FDA-Public Use
  Company Number: FK201202585

PATIENT
  Age: 59 Year
  Sex: Male

DRUGS (4)
  1. GEMCITABINE (MANUFACTURER UNKNOWN) (GEMCITABINE) (GEMCITABINE) [Suspect]
     Dosage: 1000 mg/m2, on days 1, 8 and 15 of 28 days cycle
  2. GEMCITABINE (MANUFACTURER UNKNOWN) (GEMCITABINE) (GEMCITABINE) [Suspect]
     Dosage: 1000 mg/m2, on days 1, 8 and 15 of 28 days cycle
  3. ERLOTINIB [Suspect]
  4. ERLOTINIB [Suspect]

REACTIONS (3)
  - Interstitial lung disease [None]
  - Pyrexia [None]
  - Haemoglobin decreased [None]
